FAERS Safety Report 7641959-9 (Version None)
Quarter: 2011Q3

REPORT INFORMATION
  Report Type: 
  Country: None (occurrence: None)
  Receive Date: 20110728
  Receipt Date: 20110718
  Transmission Date: 20111222
  Serious: Yes (Other)
  Sender: FDA-Public Use
  Company Number: US-JNJFOC-20110707682

PATIENT

DRUGS (4)
  1. REMICADE [Suspect]
     Indication: CONJUNCTIVAL HAEMORRHAGE
     Route: 042
  2. REMICADE [Suspect]
     Indication: PSORIATIC ARTHROPATHY
     Route: 042
  3. SOLU-MEDROL [Concomitant]
     Indication: EYE INFLAMMATION
  4. SOLU-MEDROL [Concomitant]
     Indication: PSORIATIC ARTHROPATHY

REACTIONS (2)
  - EYE HAEMORRHAGE [None]
  - OFF LABEL USE [None]
